FAERS Safety Report 5177349-0 (Version None)
Quarter: 2006Q4

REPORT INFORMATION
  Report Type: 
  Country: None (occurrence: None)
  Receive Date: 20061207
  Receipt Date: 20061124
  Transmission Date: 20070319
  Serious: Yes (Other)
  Sender: FDA-Public Use
  Company Number: 2006144674

PATIENT
  Age: 35 Year
  Sex: Female

DRUGS (1)
  1. ZYVOX [Suspect]
     Dates: start: 20061121

REACTIONS (1)
  - LABYRINTHITIS [None]
